FAERS Safety Report 4981860-2 (Version None)
Quarter: 2006Q2

REPORT INFORMATION
  Report Type: 
  Country: None (occurrence: None)
  Receive Date: 20060425
  Receipt Date: 20060318
  Transmission Date: 20061013
  Serious: Yes (Hospitalization)
  Sender: FDA-Public Use
  Company Number: PHEH2006US03729

PATIENT
  Sex: Female

DRUGS (11)
  1. EXJADE [Suspect]
     Dates: end: 20060201
  2. METOPROLOL TARTRATE [Concomitant]
  3. LASIX [Concomitant]
     Dosage: 40 MG, UNK
  4. ALDACTONE [Concomitant]
     Dosage: 25 MG, UNK
  5. LEVOTHYROXINE SODIUM [Concomitant]
  6. OMEPRAZOLE [Concomitant]
     Dosage: 20 MG, Q12H
  7. LORAZEPAM [Concomitant]
     Dosage: 2 MG, UNK
  8. PERCOCET [Concomitant]
     Dosage: UNK MG, UNK
  9. WARFARIN SODIUM [Concomitant]
  10. LANTUS [Concomitant]
  11. NOVOLOG [Concomitant]

REACTIONS (7)
  - ASTHENIA [None]
  - BLOOD CREATININE INCREASED [None]
  - BLOOD UREA INCREASED [None]
  - HAEMATOCRIT DECREASED [None]
  - INTERNATIONAL NORMALISED RATIO INCREASED [None]
  - PROTHROMBIN TIME PROLONGED [None]
  - RENAL FAILURE [None]
